FAERS Safety Report 20065397 (Version 8)
Quarter: 2022Q2

REPORT INFORMATION
  Report Type: Spontaneous
  Country: US (occurrence: US)
  Receive Date: 20211113
  Receipt Date: 20220425
  Transmission Date: 20220721
  Serious: Yes (Hospitalization, Other)
  Sender: FDA-Public Use
  Company Number: US-GLAXOSMITHKLINE-US2021228621

PATIENT
  Sex: Female

DRUGS (7)
  1. ZEJULA [Suspect]
     Active Substance: NIRAPARIB
     Indication: Ovarian cancer
     Dosage: 200 MG, QD
     Route: 048
     Dates: start: 20211010
  2. ZEJULA [Suspect]
     Active Substance: NIRAPARIB
     Dosage: 200 MG, QD
     Route: 048
  3. ZEJULA [Suspect]
     Active Substance: NIRAPARIB
     Dosage: 200 MG, QD
     Route: 048
  4. ZEJULA [Suspect]
     Active Substance: NIRAPARIB
     Dosage: UNK (LOWERED DOSE)
     Dates: start: 20220131
  5. ZEJULA [Suspect]
     Active Substance: NIRAPARIB
     Dosage: 100 MG, QD
     Route: 048
  6. ZEJULA [Suspect]
     Active Substance: NIRAPARIB
     Dosage: 100 MG, QD
     Route: 048
     Dates: end: 20220415
  7. AMLODIPINE [Concomitant]
     Active Substance: AMLODIPINE BESYLATE
     Indication: Product used for unknown indication
     Dosage: UNK

REACTIONS (13)
  - Recurrent cancer [Unknown]
  - Malignant neoplasm progression [Unknown]
  - Gastrointestinal haemorrhage [Unknown]
  - Colitis [Unknown]
  - Decreased appetite [Unknown]
  - Insomnia [Unknown]
  - Constipation [Unknown]
  - Cardiac murmur [Recovering/Resolving]
  - Dizziness [Recovering/Resolving]
  - Headache [Recovering/Resolving]
  - Blood test abnormal [Recovering/Resolving]
  - Fatigue [Recovering/Resolving]
  - Blood creatinine increased [Not Recovered/Not Resolved]
